FAERS Safety Report 23714356 (Version 2)
Quarter: 2024Q2

REPORT INFORMATION
  Report Type: Report from Study
  Country: US (occurrence: US)
  Receive Date: 20240405
  Receipt Date: 20240628
  Transmission Date: 20240716
  Serious: Yes (Hospitalization, Other)
  Sender: FDA-Public Use
  Company Number: US-ABBVIE-5565836

PATIENT
  Age: 81 Year
  Sex: Male

DRUGS (1)
  1. HUMIRA [Suspect]
     Active Substance: ADALIMUMAB
     Indication: Colitis ulcerative
     Dosage: CITRATE FREE
     Route: 058
     Dates: start: 2023

REACTIONS (8)
  - Rectal haemorrhage [Recovering/Resolving]
  - Colitis [Not Recovered/Not Resolved]
  - Dehydration [Unknown]
  - Chronic kidney disease [Not Recovered/Not Resolved]
  - Urinary tract infection [Unknown]
  - Anaemia [Unknown]
  - Blood pressure decreased [Recovering/Resolving]
  - Drug ineffective [Recovering/Resolving]

NARRATIVE: CASE EVENT DATE: 20231201
